FAERS Safety Report 18057995 (Version 2)
Quarter: 2024Q2

REPORT INFORMATION
  Report Type: Report from Study
  Country: DE (occurrence: DE)
  Receive Date: 20200723
  Receipt Date: 20240627
  Transmission Date: 20240716
  Serious: Yes (Death)
  Sender: FDA-Public Use
  Company Number: DE-ROCHE-2647288

PATIENT
  Age: 76 Year
  Sex: Female
  Weight: 60.0 kg

DRUGS (3)
  1. TRASTUZUMAB [Suspect]
     Active Substance: TRASTUZUMAB
     Indication: Breast cancer
     Dosage: ON 02/OCT/2019, PATIENT RECEIVED LAST DOSE OF DRUG- 420 MG PRIOR TO AE.
     Route: 065
  2. PERJETA [Suspect]
     Active Substance: PERTUZUMAB
     Indication: Breast cancer
     Route: 065
     Dates: start: 20190710, end: 20190710
  3. PACLITAXEL [Suspect]
     Active Substance: PACLITAXEL
     Indication: Breast cancer
     Route: 065
     Dates: start: 20190221, end: 20190404

REACTIONS (1)
  - Nosocomial infection [Fatal]

NARRATIVE: CASE EVENT DATE: 20200426
